FAERS Safety Report 7361096-0 (Version None)
Quarter: 2011Q1

REPORT INFORMATION
  Report Type: 
  Country: None (occurrence: None)
  Receive Date: 20110315
  Receipt Date: 20110315
  Transmission Date: 20110831
  Serious: Yes (Disabling, Other)
  Sender: FDA-Public Use
  Company Number: None

PATIENT
  Age: 57 Year
  Sex: Female
  Weight: 109.7705 kg

DRUGS (1)
  1. COPAXONE [Suspect]
     Indication: MULTIPLE SCLEROSIS
     Dosage: 1 INJECTION DAILY
     Dates: start: 20040901, end: 20110101

REACTIONS (4)
  - HAEMATOMA [None]
  - INFECTION [None]
  - UNEVALUABLE EVENT [None]
  - ABASIA [None]
